FAERS Safety Report 15354516 (Version 1)
Quarter: 2018Q3

REPORT INFORMATION
  Report Type: Spontaneous
  Country: US (occurrence: US)
  Receive Date: 20180906
  Receipt Date: 20180906
  Transmission Date: 20181010
  Serious: No
  Sender: FDA-Public Use
  Company Number: US-BIOGEN-2018BI00629172

PATIENT
  Sex: Female

DRUGS (3)
  1. TYSABRI [Suspect]
     Active Substance: NATALIZUMAB
     Indication: MULTIPLE SCLEROSIS
     Route: 042
     Dates: start: 20180321
  2. TYSABRI [Suspect]
     Active Substance: NATALIZUMAB
     Dates: start: 20160217, end: 20170609
  3. TYSABRI [Suspect]
     Active Substance: NATALIZUMAB
     Dates: start: 20110805, end: 20150811

REACTIONS (1)
  - Confusional state [Not Recovered/Not Resolved]
